FAERS Safety Report 4310585-1 (Version None)
Quarter: 2004Q1

REPORT INFORMATION
  Report Type: 
  Country: None (occurrence: None)
  Receive Date: 20040301
  Receipt Date: 20031106
  Transmission Date: 20041129
  Serious: No
  Sender: FDA-Public Use
  Company Number: WAES 0311USA00676

PATIENT
  Age: 75 Year
  Sex: Male

DRUGS (7)
  1. ZETIA [Suspect]
     Indication: LOW DENSITY LIPOPROTEIN INCREASED
     Dosage: 10 MG/HS/PO
     Route: 048
     Dates: start: 20031023, end: 20031102
  2. ZETIA [Suspect]
     Indication: LOW DENSITY LIPOPROTEIN INCREASED
     Dosage: 10 MG/HS/PO
     Route: 048
     Dates: start: 20031105, end: 20031105
  3. ACIPHEX [Concomitant]
  4. MAVIK [Concomitant]
  5. SYNTHROID [Concomitant]
  6. ASPIRIN [Concomitant]
  7. ATENOLOL [Concomitant]

REACTIONS (4)
  - DIZZINESS [None]
  - FATIGUE [None]
  - HEADACHE [None]
  - SOMNOLENCE [None]
